FAERS Safety Report 24888773 (Version 1)
Quarter: 2025Q1

REPORT INFORMATION
  Report Type: Spontaneous
  Country: FR (occurrence: FR)
  Receive Date: 20250127
  Receipt Date: 20250127
  Transmission Date: 20250409
  Serious: Yes (Other)
  Sender: MYLAN
  Company Number: FR-MYLANLABS-2025M1005513

PATIENT
  Age: 2 Month

DRUGS (1)
  1. DEXMEDETOMIDINE HYDROCHLORIDE [Suspect]
     Active Substance: DEXMEDETOMIDINE HYDROCHLORIDE
     Indication: Sedation
     Route: 045

REACTIONS (8)
  - Depressed level of consciousness [Unknown]
  - Miosis [Unknown]
  - Hypotonia [Unknown]
  - Hypertension [Unknown]
  - Bradycardia [Unknown]
  - Hyperglycaemia [Unknown]
  - Product prescribing issue [Unknown]
  - Incorrect route of product administration [Unknown]
